FAERS Safety Report 26002220 (Version 1)
Quarter: 2025Q4

REPORT INFORMATION
  Report Type: Spontaneous
  Country: US (occurrence: US)
  Receive Date: 20251105
  Receipt Date: 20251105
  Transmission Date: 20260117
  Serious: No
  Sender: CELLTRION
  Company Number: US-CELLTRION INC.-2025US026322

PATIENT

DRUGS (1)
  1. ZYMFENTRA [Suspect]
     Active Substance: INFLIXIMAB-DYYB
     Indication: Crohn^s disease
     Dosage: 120 MG, ONE EVERY 2 WEEKS
     Route: 058
     Dates: start: 202407

REACTIONS (2)
  - Product dose omission issue [Recovered/Resolved]
  - Product prescribing issue [Recovered/Resolved]

NARRATIVE: CASE EVENT DATE: 20250730
